FAERS Safety Report 17324738 (Version 1)
Quarter: 2020Q1

REPORT INFORMATION
  Report Type: Spontaneous
  Country: US (occurrence: US)
  Receive Date: 20200124
  Receipt Date: 20200124
  Transmission Date: 20200409
  Serious: Yes (Life-Threatening)
  Sender: FDA-Public Use
  Company Number: None

PATIENT
  Age: 48 Year
  Sex: Female
  Weight: 71.55 kg

DRUGS (1)
  1. ALBUTEROL SULFATE HFA INHALATION AEROSOL 200 METERED DOSES [Suspect]
     Active Substance: ALBUTEROL SULFATE
     Indication: ASTHMA
     Dosage: ?          QUANTITY:2 PUFF(S);?
     Route: 055
     Dates: start: 20191125

REACTIONS (2)
  - Incorrect dose administered by device [None]
  - Therapeutic product effect decreased [None]

NARRATIVE: CASE EVENT DATE: 20200124
